FAERS Safety Report 4826198-9 (Version None)
Quarter: 2005Q4

REPORT INFORMATION
  Report Type: 
  Country: None (occurrence: None)
  Receive Date: 20051014
  Receipt Date: 20050718
  Transmission Date: 20060501
  Serious: No
  Sender: FDA-Public Use
  Company Number: 2005SP001941

PATIENT
  Age: 67 Year
  Sex: Male
  Weight: 95.2554 kg

DRUGS (6)
  1. LUNESTA [Suspect]
     Indication: INITIAL INSOMNIA
     Dosage: 2 MG;HS;ORAL   3 MG;HS;ORAL
     Route: 048
     Dates: start: 20050704, end: 20050714
  2. LUNESTA [Suspect]
     Indication: INITIAL INSOMNIA
     Dosage: 2 MG;HS;ORAL   3 MG;HS;ORAL
     Route: 048
     Dates: start: 20050715
  3. ZOLOFT [Concomitant]
  4. KLONOPIN [Concomitant]
  5. HALCION [Concomitant]
  6. OTHER AGENTS FOR LOCAL ORAL TREATMENT [Concomitant]

REACTIONS (1)
  - DYSGEUSIA [None]
